FAERS Safety Report 6131183-3 (Version None)
Quarter: 2009Q1

REPORT INFORMATION
  Report Type: 
  Country: None (occurrence: None)
  Receive Date: 20090325
  Receipt Date: 20090323
  Transmission Date: 20090719
  Serious: Yes (Life-Threatening, Hospitalization, Other)
  Sender: FDA-Public Use
  Company Number: US-ASTRAZENECA-2009AC00559

PATIENT
  Age: 27 Year
  Sex: Female

DRUGS (1)
  1. QUETIAPINE FUMARATE [Suspect]
     Dosage: 30 G
     Route: 048

REACTIONS (3)
  - GRAND MAL CONVULSION [None]
  - OVERDOSE [None]
  - RESPIRATORY DISTRESS [None]
